FAERS Safety Report 11402356 (Version 1)
Quarter: 2015Q3

REPORT INFORMATION
  Report Type: Spontaneous
  Country: US (occurrence: US)
  Receive Date: 20150821
  Receipt Date: 20150821
  Transmission Date: 20151125
  Serious: No
  Sender: FDA-Public Use
  Company Number: US-ROCHE-1294250

PATIENT
  Sex: Female

DRUGS (2)
  1. RIBAVIRIN. [Suspect]
     Active Substance: RIBAVIRIN
     Indication: CHRONIC HEPATITIS C
     Dosage: DIVIDED DOSES, 400/400
     Route: 065
     Dates: start: 20131022
  2. PEGASYS [Suspect]
     Active Substance: PEGINTERFERON ALFA-2A
     Indication: CHRONIC HEPATITIS C
     Route: 058
     Dates: start: 20131022

REACTIONS (9)
  - Headache [Unknown]
  - Chills [Unknown]
  - Back pain [Unknown]
  - Palpitations [Unknown]
  - Gastric disorder [Unknown]
  - Muscle spasms [Unknown]
  - Blood blister [Unknown]
  - Bone pain [Unknown]
  - Presyncope [Unknown]
